FAERS Safety Report 6706327-2 (Version None)
Quarter: 2010Q2

REPORT INFORMATION
  Report Type: 
  Country: None (occurrence: None)
  Receive Date: 20100503
  Receipt Date: 20100426
  Transmission Date: 20101027
  Serious: Yes (Other)
  Sender: FDA-Public Use
  Company Number: US-ELI_LILLY_AND_COMPANY-US201001005624

PATIENT
  Sex: Male

DRUGS (3)
  1. BYETTA [Suspect]
     Indication: TYPE 2 DIABETES MELLITUS
     Dosage: 5 UG, 2/D
     Route: 058
     Dates: start: 20090420, end: 20090503
  2. BYETTA [Suspect]
     Dosage: 10 UG, 2/D
     Route: 058
     Dates: start: 20090504, end: 20100114
  3. LEVEMIR [Concomitant]
     Dosage: 22 U, EACH EVENING
     Dates: start: 20090420

REACTIONS (4)
  - BLOOD TRIGLYCERIDES INCREASED [None]
  - OFF LABEL USE [None]
  - PANCREATIC ABSCESS [None]
  - SPLENECTOMY [None]
